FAERS Safety Report 9768608 (Version 17)
Quarter: 2015Q4

REPORT INFORMATION
  Report Type: Report from Study
  Country: CA (occurrence: CA)
  Receive Date: 20131218
  Receipt Date: 20151130
  Transmission Date: 20160305
  Serious: Yes (Other)
  Sender: FDA-Public Use
  Company Number: CA-ROCHE-1165437

PATIENT
  Age: 32 Year
  Sex: Female
  Weight: 71 kg

DRUGS (13)
  1. ACTEMRA [Suspect]
     Active Substance: TOCILIZUMAB
     Route: 042
     Dates: start: 20150707
  2. MEFENAMIC ACID. [Concomitant]
     Active Substance: MEFENAMIC ACID
  3. ACTEMRA [Suspect]
     Active Substance: TOCILIZUMAB
     Indication: RHEUMATOID ARTHRITIS
     Route: 042
     Dates: start: 20121029
  4. PLAQUENIL [Concomitant]
     Active Substance: HYDROXYCHLOROQUINE SULFATE
  5. FOLIC ACID. [Concomitant]
     Active Substance: FOLIC ACID
  6. IBUPROFEN/PARACETAMOL [Concomitant]
     Route: 065
  7. SULFASALAZINE. [Concomitant]
     Active Substance: SULFASALAZINE
  8. CELEBREX [Concomitant]
     Active Substance: CELECOXIB
     Route: 065
  9. PREDNISONE. [Concomitant]
     Active Substance: PREDNISONE
  10. IBUPROFEN. [Concomitant]
     Active Substance: IBUPROFEN
     Route: 065
  11. TYLENOL #3 (UNITED STATES) [Concomitant]
  12. DICYCLOMINE HYDROCHLORIDE. [Concomitant]
     Active Substance: DICYCLOMINE HYDROCHLORIDE
  13. CELEBREX [Concomitant]
     Active Substance: CELECOXIB
     Dosage: 1-2 PER DAY
     Route: 065

REACTIONS (22)
  - Ill-defined disorder [Unknown]
  - Dizziness [Not Recovered/Not Resolved]
  - Thyroid disorder [Unknown]
  - Pain [Unknown]
  - Joint swelling [Unknown]
  - Shoulder operation [Recovered/Resolved]
  - Abdominal pain [Not Recovered/Not Resolved]
  - Arthritis [Recovering/Resolving]
  - Oropharyngeal pain [Unknown]
  - Drug effect decreased [Unknown]
  - Pain in extremity [Unknown]
  - Vomiting [Recovered/Resolved]
  - Abdominal discomfort [Unknown]
  - Cough [Recovered/Resolved]
  - Wheezing [Recovered/Resolved]
  - Hypertension [Unknown]
  - Infusion related reaction [Unknown]
  - Weight decreased [Unknown]
  - Inflammation [Unknown]
  - Arthralgia [Not Recovered/Not Resolved]
  - Nasopharyngitis [Unknown]
  - Fatigue [Unknown]

NARRATIVE: CASE EVENT DATE: 20130126
